FAERS Safety Report 16796307 (Version 6)
Quarter: 2021Q1

REPORT INFORMATION
  Report Type: Spontaneous
  Country: BR (occurrence: BR)
  Receive Date: 20190911
  Receipt Date: 20210224
  Transmission Date: 20210419
  Serious: Yes (Other)
  Sender: FDA-Public Use
  Company Number: BR-GLAXOSMITHKLINE-BR2015GSK059049

PATIENT
  Age: 55 Year
  Sex: Female
  Weight: 52 kg

DRUGS (2)
  1. METHOTREXATE. [Concomitant]
     Active Substance: METHOTREXATE
     Indication: PRODUCT USED FOR UNKNOWN INDICATION
     Dosage: UNK
  2. BENLYSTA [Suspect]
     Active Substance: BELIMUMAB
     Indication: SYSTEMIC LUPUS ERYTHEMATOSUS
     Dosage: 400 MG, UNK
     Dates: start: 20150226

REACTIONS (38)
  - Pain [Recovered/Resolved]
  - Spinal pain [Recovered/Resolved]
  - Fall [Recovered/Resolved]
  - Underdose [Unknown]
  - Formication [Unknown]
  - Arthritis [Recovered/Resolved]
  - Product dose omission issue [Unknown]
  - Productive cough [Unknown]
  - Insomnia [Unknown]
  - Burning sensation [Unknown]
  - Osteoporosis [Unknown]
  - Malaise [Unknown]
  - Chills [Unknown]
  - Product availability issue [Unknown]
  - Pyrexia [Unknown]
  - Pain in extremity [Recovered/Resolved]
  - Neck pain [Unknown]
  - Memory impairment [Unknown]
  - Dyspnoea [Unknown]
  - Musculoskeletal chest pain [Unknown]
  - Nasopharyngitis [Unknown]
  - Circumstance or information capable of leading to medication error [Not Recovered/Not Resolved]
  - Syncope [Recovered/Resolved]
  - Back pain [Unknown]
  - Arthralgia [Not Recovered/Not Resolved]
  - Exostosis [Not Recovered/Not Resolved]
  - Agitation [Unknown]
  - Erythema [Unknown]
  - Feeling hot [Unknown]
  - Joint noise [Unknown]
  - Inappropriate schedule of product administration [Not Recovered/Not Resolved]
  - Pneumonia [Recovered/Resolved]
  - Blood cholesterol increased [Unknown]
  - Cystitis [Unknown]
  - Condition aggravated [Unknown]
  - Muscle strain [Unknown]
  - Herpes virus infection [Unknown]
  - Gastric disorder [Unknown]

NARRATIVE: CASE EVENT DATE: 20150514
